FAERS Safety Report 13849970 (Version 3)
Quarter: 2017Q4

REPORT INFORMATION
  Report Type: Spontaneous
  Country: US (occurrence: US)
  Receive Date: 20170809
  Receipt Date: 20171112
  Transmission Date: 20180320
  Serious: No
  Sender: FDA-Public Use
  Company Number: US-BAUSCH-BL-2017-020840

PATIENT
  Age: 63 Year
  Sex: Female
  Weight: 64.47 kg

DRUGS (1)
  1. RELISTOR [Suspect]
     Active Substance: METHYLNALTREXONE BROMIDE
     Indication: BOWEL MOVEMENT IRREGULARITY
     Route: 048
     Dates: start: 20170612, end: 20170705

REACTIONS (3)
  - Pruritus genital [Not Recovered/Not Resolved]
  - Genital erythema [Not Recovered/Not Resolved]
  - Genital swelling [Not Recovered/Not Resolved]

NARRATIVE: CASE EVENT DATE: 201706
